FAERS Safety Report 8919298 (Version 3)
Quarter: 2012Q4

REPORT INFORMATION
  Report Type: 
  Country: FR (occurrence: FR)
  Receive Date: 20121121
  Receipt Date: 20121217
  Transmission Date: 20130627
  Serious: No
  Sender: FDA-Public Use
  Company Number: FR-PFIZER INC-2012287726

PATIENT
  Age: 66 Year
  Sex: Male
  Weight: 65 kg

DRUGS (1)
  1. ATORVASTATINE PFIZER [Suspect]
     Dosage: 40 mg, daily
     Route: 048
     Dates: start: 20121006, end: 20121115

REACTIONS (2)
  - Hyperchlorhydria [Recovered/Resolved]
  - Myalgia [Recovered/Resolved]
